FAERS Safety Report 10224678 (Version 2)
Quarter: 2014Q2

REPORT INFORMATION
  Report Type: Spontaneous
  Country: TN (occurrence: TN)
  Receive Date: 20140609
  Receipt Date: 20140609
  Transmission Date: 20141212
  Serious: Yes (Other)
  Sender: FDA-Public Use
  Company Number: PHHY2014TN066300

PATIENT
  Age: 16 Year
  Sex: Male

DRUGS (4)
  1. VALPROIC ACID [Suspect]
     Indication: PSYCHOMOTOR RETARDATION
     Dosage: 30 MG/KG, PER DAY
  2. VALPROIC ACID [Suspect]
     Indication: GENERALISED TONIC-CLONIC SEIZURE
  3. CLONAZEPAM [Concomitant]
     Indication: PSYCHOMOTOR RETARDATION
     Dosage: 0.6 MG/KG, PER DAY
  4. CLONAZEPAM [Concomitant]
     Indication: GENERALISED TONIC-CLONIC SEIZURE

REACTIONS (8)
  - Cerebellar hypoplasia [Unknown]
  - Dysmorphism [Unknown]
  - Hypotonia [Unknown]
  - Quadriplegia [Unknown]
  - Mental retardation [Unknown]
  - Language disorder [Unknown]
  - Dystonia [Unknown]
  - Creatine urine increased [Unknown]
